FAERS Safety Report 10467697 (Version 1)
Quarter: 2014Q3

REPORT INFORMATION
  Report Type: Spontaneous
  Country: GR (occurrence: GR)
  Receive Date: 20140922
  Receipt Date: 20140922
  Transmission Date: 20150326
  Serious: Yes (Hospitalization)
  Sender: FDA-Public Use
  Company Number: GR-GLAXOSMITHKLINE-B1035606A

PATIENT
  Age: 7 Year
  Sex: Female

DRUGS (1)
  1. PROPAFENONE HCL [Suspect]
     Active Substance: PROPAFENONE HYDROCHLORIDE
     Indication: PRODUCT USED FOR UNKNOWN INDICATION
     Route: 065

REACTIONS (1)
  - Accidental exposure to product by child [Recovered/Resolved]
